FAERS Safety Report 25573453 (Version 1)
Quarter: 2025Q3

REPORT INFORMATION
  Report Type: Spontaneous
  Country: US (occurrence: None)
  Receive Date: 20250716
  Receipt Date: 20250716
  Transmission Date: 20251020
  Serious: No
  Sender: FDA-CTU
  Company Number: None

PATIENT
  Age: 72 Year
  Sex: Female
  Weight: 62.55 kg

DRUGS (6)
  1. CLARITIN-D NOS [Suspect]
     Active Substance: LORATADINE\PSEUDOEPHEDRINE SULFATE
     Indication: Pruritus
     Dosage: OTHER QUANTITY : 1 TABLET(S);?FREQUENCY : DAILY;?
     Route: 048
     Dates: start: 20250710, end: 20250711
  2. PEPCID COMPLETE [Suspect]
     Active Substance: CALCIUM CARBONATE\FAMOTIDINE\MAGNESIUM HYDROXIDE
  3. Prevision [Concomitant]
  4. Floate + B12 [Concomitant]
  5. CITICOLINE [Concomitant]
     Active Substance: CITICOLINE
  6. Alpha Lipo Acid [Concomitant]

REACTIONS (9)
  - Back pain [None]
  - Spinal pain [None]
  - Tendon pain [None]
  - Myalgia [None]
  - Pain in extremity [None]
  - Pain in extremity [None]
  - Pain [None]
  - Arthralgia [None]
  - Injury [None]

NARRATIVE: CASE EVENT DATE: 20250710
